FAERS Safety Report 21058065 (Version 4)
Quarter: 2022Q4

REPORT INFORMATION
  Report Type: Report from Study
  Country: US (occurrence: US)
  Receive Date: 20220708
  Receipt Date: 20221007
  Transmission Date: 20230112
  Serious: Yes (Hospitalization, Other)
  Sender: FDA-Public Use
  Company Number: US-BAYER-2022A090606

PATIENT
  Age: 73 Year
  Sex: Female
  Weight: 111.11 kg

DRUGS (11)
  1. ADEMPAS [Suspect]
     Active Substance: RIOCIGUAT
     Indication: Pulmonary arterial hypertension
     Dosage: 0.5 MG, TID
     Route: 048
     Dates: start: 20220523
  2. ADEMPAS [Suspect]
     Active Substance: RIOCIGUAT
     Indication: Pulmonary arterial hypertension
     Dosage: 1 MG, TID
     Route: 048
     Dates: start: 2022, end: 2022
  3. ORENITRAM [Suspect]
     Active Substance: TREPROSTINIL
     Indication: Pulmonary arterial hypertension
     Dosage: 8.625 MG, BID
     Route: 048
     Dates: start: 20190124
  4. ORENITRAM [Suspect]
     Active Substance: TREPROSTINIL
     Indication: Pulmonary arterial hypertension
     Dosage: UNK
     Route: 048
  5. ORENITRAM [Suspect]
     Active Substance: TREPROSTINIL
     Indication: Pulmonary arterial hypertension
     Dosage: UNK
  6. ORENITRAM [Suspect]
     Active Substance: TREPROSTINIL
     Indication: Pulmonary arterial hypertension
     Dosage: UNK
  7. ORENITRAM [Suspect]
     Active Substance: TREPROSTINIL
     Indication: Pulmonary arterial hypertension
     Dosage: UNK
  8. OPSUMIT [Concomitant]
     Active Substance: MACITENTAN
  9. REVATIO [Concomitant]
     Active Substance: SILDENAFIL CITRATE
  10. ELIQUIS [Concomitant]
     Active Substance: APIXABAN
  11. TADALAFIL [Concomitant]
     Active Substance: TADALAFIL
     Dosage: 20 MG, QD

REACTIONS (21)
  - Fall [None]
  - Syncope [None]
  - Head injury [None]
  - Haemorrhage intracranial [None]
  - Hypotension [Not Recovered/Not Resolved]
  - Perennial allergy [Not Recovered/Not Resolved]
  - Throat irritation [None]
  - Dysphonia [None]
  - Cough [None]
  - Rhinorrhoea [None]
  - Hunger [None]
  - Dizziness [Not Recovered/Not Resolved]
  - Seasonal allergy [Not Recovered/Not Resolved]
  - Fall [None]
  - Contusion [None]
  - Back injury [None]
  - Skin laceration [None]
  - Skin haemorrhage [None]
  - Weight increased [None]
  - Dyspnoea [Not Recovered/Not Resolved]
  - Oedema peripheral [None]

NARRATIVE: CASE EVENT DATE: 20220101
